FAERS Safety Report 6233760-8 (Version None)
Quarter: 2009Q2

REPORT INFORMATION
  Report Type: 
  Country: None (occurrence: None)
  Receive Date: 20090616
  Receipt Date: 20090616
  Transmission Date: 20091009
  Serious: Yes (Other)
  Sender: FDA-Public Use
  Company Number: None

PATIENT
  Age: 6 Year
  Sex: Male
  Weight: 20.4119 kg

DRUGS (1)
  1. TAMIFLU [Suspect]
     Indication: INFLUENZA
     Dosage: 3/4 OF A TEASPOON 2X DAY PO
     Route: 048
     Dates: start: 20090612, end: 20090615

REACTIONS (2)
  - ABASIA [None]
  - MUSCLE SPASMS [None]
